FAERS Safety Report 9117422 (Version 1)
Quarter: 2013Q1

REPORT INFORMATION
  Report Type: Spontaneous
  Country: US (occurrence: US)
  Receive Date: 20130208
  Receipt Date: 20130208
  Transmission Date: 20140127
  Serious: Yes (Other)
  Sender: FDA-Public Use
  Company Number: US-RB-049311-13

PATIENT
  Age: 82 Year
  Sex: Male

DRUGS (2)
  1. MUCINEX D [Suspect]
     Indication: PRODUCT USED FOR UNKNOWN INDICATION
     Dosage: PATIENT TOOK 1 TABLET TWO WEEKS AGO.
     Route: 048
  2. MUCINEX D [Suspect]

REACTIONS (1)
  - Urinary retention [Unknown]
